FAERS Safety Report 10648647 (Version 8)
Quarter: 2016Q1

REPORT INFORMATION
  Report Type: Spontaneous
  Country: US (occurrence: US)
  Receive Date: 20141212
  Receipt Date: 20160111
  Transmission Date: 20160525
  Serious: Yes (Hospitalization, Other)
  Sender: FDA-Public Use
  Company Number: US-GLAXOSMITHKLINE-US2014GSK034688

PATIENT
  Sex: Female

DRUGS (23)
  1. LAMICTAL [Suspect]
     Active Substance: LAMOTRIGINE
     Indication: BIPOLAR I DISORDER
     Dosage: 200 MG, QD
     Route: 048
     Dates: start: 2008, end: 2014
  2. LASIX [Suspect]
     Active Substance: FUROSEMIDE
     Indication: PERIPHERAL SWELLING
     Dosage: UNK, U
     Route: 065
     Dates: start: 2013
  3. PROZAC [Suspect]
     Active Substance: FLUOXETINE HYDROCHLORIDE
     Indication: PRODUCT USED FOR UNKNOWN INDICATION
     Dosage: UNK, U
     Route: 065
  4. POTASSIUM [Concomitant]
     Active Substance: POTASSIUM
  5. NORCO [Concomitant]
     Active Substance: ACETAMINOPHEN\HYDROCODONE BITARTRATE
  6. MELATONIN [Concomitant]
     Active Substance: MELATONIN
  7. LITHIUM. [Suspect]
     Active Substance: LITHIUM
     Dosage: 450 MG, QD
     Dates: start: 20130520, end: 20130608
  8. BIOFLEX [Concomitant]
     Active Substance: GLUCOSAMINE SULFATE
  9. PEPCID [Concomitant]
     Active Substance: FAMOTIDINE
  10. OMEPRAZOL [Concomitant]
     Active Substance: OMEPRAZOLE
  11. DOXYCYCLINE. [Concomitant]
     Active Substance: DOXYCYCLINE
  12. LAMICTAL [Suspect]
     Active Substance: LAMOTRIGINE
     Dosage: 100 UNK, UNK
     Dates: start: 20070427
  13. ATENOLOL. [Suspect]
     Active Substance: ATENOLOL
     Indication: CARDIAC DISORDER
  14. FLAGYL [Suspect]
     Active Substance: METRONIDAZOLE\METRONIDAZOLE HYDROCHLORIDE
     Indication: PRODUCT USED FOR UNKNOWN INDICATION
     Dosage: UNK, U
     Route: 065
  15. THEO-DUR [Concomitant]
     Active Substance: THEOPHYLLINE ANHYDROUS
  16. LAMICTAL [Suspect]
     Active Substance: LAMOTRIGINE
     Dosage: UNK
     Dates: start: 20070328
  17. ALDACTONE [Suspect]
     Active Substance: SPIRONOLACTONE
     Indication: HYPERTENSION
     Dosage: UNK, U
     Route: 065
     Dates: start: 2013, end: 2014
  18. EFFEXOR [Suspect]
     Active Substance: VENLAFAXINE HYDROCHLORIDE
     Indication: BIPOLAR DISORDER
     Dosage: UNK, QD
     Route: 065
     Dates: start: 2008, end: 2013
  19. LEXAPRO [Suspect]
     Active Substance: ESCITALOPRAM OXALATE
     Indication: PRODUCT USED FOR UNKNOWN INDICATION
     Dosage: UNK, U
     Route: 065
  20. LAMOTRIGINE. [Suspect]
     Active Substance: LAMOTRIGINE
     Indication: PRODUCT USED FOR UNKNOWN INDICATION
     Dosage: 200 MG, QD
     Dates: start: 20080913
  21. SEROTONIN [Suspect]
     Active Substance: SEROTONIN
     Indication: DEPRESSION
     Dosage: 2 DF, QD
     Route: 065
     Dates: start: 2014
  22. ATENOLOL. [Suspect]
     Active Substance: ATENOLOL
     Indication: AORTIC STENOSIS
     Dosage: UNK, U
     Route: 065
     Dates: start: 2013, end: 2014
  23. OXYCODONE [Concomitant]
     Active Substance: OXYCODONE

REACTIONS (28)
  - Swelling [Recovered/Resolved]
  - Dyspnoea [Recovering/Resolving]
  - Back pain [Unknown]
  - Essential tremor [Recovering/Resolving]
  - Dependence [Unknown]
  - Adverse drug reaction [Recovered/Resolved]
  - Ill-defined disorder [Unknown]
  - Back injury [Unknown]
  - Therapeutic response decreased [Unknown]
  - Bipolar disorder [Unknown]
  - Depression [Unknown]
  - Road traffic accident [Unknown]
  - Deep brain stimulation [Unknown]
  - Hostility [Unknown]
  - Activities of daily living impaired [Unknown]
  - Drug ineffective [Unknown]
  - Impulsive behaviour [Unknown]
  - Confusional state [Recovered/Resolved]
  - Encephalopathy [Unknown]
  - Fall [Unknown]
  - Speech disorder [Recovered/Resolved]
  - Hypersensitivity [Recovered/Resolved]
  - Oedema [Recovered/Resolved]
  - Spinal operation [Unknown]
  - Hypersensitivity [Unknown]
  - Lethargy [Unknown]
  - Abnormal behaviour [Unknown]
  - Drug hypersensitivity [Unknown]

NARRATIVE: CASE EVENT DATE: 2008
